FAERS Safety Report 17261480 (Version 3)
Quarter: 2021Q1

REPORT INFORMATION
  Report Type: Report from Study
  Country: US (occurrence: US)
  Receive Date: 20200113
  Receipt Date: 20210312
  Transmission Date: 20210419
  Serious: Yes (Hospitalization)
  Sender: FDA-Public Use
  Company Number: US-EMD SERONO-9139540

PATIENT
  Age: 70 Year
  Sex: Female
  Weight: 52 kg

DRUGS (1)
  1. REBIF [Suspect]
     Active Substance: INTERFERON BETA-1A
     Indication: MULTIPLE SCLEROSIS
     Route: 058
     Dates: start: 20130417

REACTIONS (8)
  - Arthralgia [Recovering/Resolving]
  - Wrong technique in device usage process [Recovered/Resolved]
  - Osteoarthritis [Unknown]
  - Hip arthroplasty [Recovered/Resolved]
  - Balance disorder [Unknown]
  - Osteoporosis [Unknown]
  - Incorrect dose administered [Recovered/Resolved]
  - Gait inability [Unknown]

NARRATIVE: CASE EVENT DATE: 201912
